FAERS Safety Report 12971397 (Version 1)
Quarter: 2016Q4

REPORT INFORMATION
  Report Type: Spontaneous
  Country: US (occurrence: US)
  Receive Date: 20161123
  Receipt Date: 20161123
  Transmission Date: 20170207
  Serious: No
  Sender: FDA-Public Use
  Company Number: US-JAZZ-2016-US-020014

PATIENT
  Sex: Male

DRUGS (14)
  1. XYREM [Suspect]
     Active Substance: SODIUM OXYBATE
     Dosage: 1.5 G, FIRST DOSE
     Route: 048
     Dates: start: 201610
  2. RESTASIS [Concomitant]
     Active Substance: CYCLOSPORINE
  3. CLONAZEPAM. [Concomitant]
     Active Substance: CLONAZEPAM
  4. FISH OIL CONCENTRATE [Concomitant]
     Active Substance: FISH OIL
  5. MELATONIN [Concomitant]
     Active Substance: MELATONIN
  6. XYREM [Suspect]
     Active Substance: SODIUM OXYBATE
     Indication: NARCOLEPSY
     Dosage: 3 G, BID
     Route: 048
     Dates: start: 201608, end: 2016
  7. TEMAZEPAM. [Concomitant]
     Active Substance: TEMAZEPAM
  8. LINZESS [Concomitant]
     Active Substance: LINACLOTIDE
  9. VITAMIN D3 [Concomitant]
     Active Substance: CHOLECALCIFEROL
  10. XYREM [Suspect]
     Active Substance: SODIUM OXYBATE
     Dosage: 3 G, SECOND DOSE
     Route: 048
     Dates: start: 201610
  11. VITAMIN B12 [Concomitant]
     Active Substance: CYANOCOBALAMIN
  12. AMOXICILLIN. [Concomitant]
     Active Substance: AMOXICILLIN
  13. CYCLOBENZAPRINE [Concomitant]
     Active Substance: CYCLOBENZAPRINE
  14. MAGNESIUM [Concomitant]
     Active Substance: MAGNESIUM

REACTIONS (1)
  - Agitation [Recovering/Resolving]
